FAERS Safety Report 9295567 (Version 1)
Quarter: 2013Q2

REPORT INFORMATION
  Report Type: Spontaneous
  Country: US (occurrence: US)
  Receive Date: 20130517
  Receipt Date: 20130517
  Transmission Date: 20140414
  Serious: No
  Sender: FDA-Public Use
  Company Number: US-009507513-1305USA006215

PATIENT
  Age: 74 Year
  Sex: Male

DRUGS (3)
  1. ZOCOR [Suspect]
     Indication: BLOOD TRIGLYCERIDES ABNORMAL
     Dosage: UNK
     Route: 048
     Dates: start: 2011, end: 201105
  2. LISINOPRIL [Concomitant]
     Route: 048
  3. LITHIUM CARBONATE [Concomitant]
     Dosage: UNK
     Dates: start: 1975

REACTIONS (1)
  - Drug ineffective [Unknown]
